FAERS Safety Report 9470506 (Version 1)
Quarter: 2013Q3

REPORT INFORMATION
  Report Type: Spontaneous
  Country: FR (occurrence: FR)
  Receive Date: 20130822
  Receipt Date: 20130822
  Transmission Date: 20140515
  Serious: Yes (Life-Threatening)
  Sender: FDA-Public Use
  Company Number: FR-ASTRAZENECA-2013SE64295

PATIENT
  Age: 22788 Day
  Sex: Male

DRUGS (6)
  1. INEXIUM [Suspect]
     Indication: ULCER
     Route: 048
  2. PLAQUENIL [Suspect]
     Indication: LUPUS-LIKE SYNDROME
     Route: 048
  3. KALEORID [Suspect]
     Route: 048
  4. MABTHERA [Suspect]
     Indication: LUPUS-LIKE SYNDROME
     Route: 042
     Dates: start: 20100318, end: 20110323
  5. PREVISCAN [Suspect]
     Indication: ATRIAL FIBRILLATION
     Route: 048
  6. CARDENSIEL [Suspect]
     Route: 048

REACTIONS (3)
  - Hepatitis B [Recovered/Resolved with Sequelae]
  - Hepatic encephalopathy [Recovered/Resolved with Sequelae]
  - Hepatic failure [Recovered/Resolved with Sequelae]
